FAERS Safety Report 8115537-1 (Version None)
Quarter: 2012Q1

REPORT INFORMATION
  Report Type: 
  Country: None (occurrence: None)
  Receive Date: 20120206
  Receipt Date: 20120124
  Transmission Date: 20120608
  Serious: Yes (Other)
  Sender: FDA-Public Use
  Company Number: ES-ELI_LILLY_AND_COMPANY-ES201201007158

PATIENT
  Sex: Female
  Weight: 32.5 kg

DRUGS (10)
  1. MAYGACE [Concomitant]
     Indication: INCREASED APPETITE
     Dosage: 10 UNK, UNK
     Route: 048
  2. FERROGRADUMET [Concomitant]
     Indication: ANAEMIA
     Dosage: 2 DF, QD
     Route: 048
  3. ASPIRIN [Concomitant]
     Indication: CARDIAC DISORDER
     Dosage: 1 DF, QD
     Route: 048
  4. FOLIC ACID [Concomitant]
     Dosage: 1 DF, QD
     Route: 048
  5. DIGOXIN [Concomitant]
     Indication: CARDIAC DISORDER
     Dosage: 1 DF, OTHER
     Route: 048
  6. FORTEO [Suspect]
     Indication: OSTEOPOROSIS
     Dosage: 20 UG, QD
     Route: 058
     Dates: start: 20110123, end: 20111201
  7. EPREX [Concomitant]
     Dosage: 1 DF, WEEKLY (1/W)
     Route: 058
  8. OMEPRAZOLE [Concomitant]
     Indication: GASTRITIS PROPHYLAXIS
     Dosage: 1 DF, QD
     Route: 048
  9. PREGABALIN [Concomitant]
     Indication: NEURALGIA
     Dosage: 1 DF, QD
     Route: 048
  10. FUROSEMIDE [Concomitant]
     Indication: DIURETIC THERAPY
     Dosage: 1 DF, QD
     Route: 048

REACTIONS (1)
  - PARKINSON'S DISEASE [None]
